FAERS Safety Report 14663105 (Version 1)
Quarter: 2018Q1

REPORT INFORMATION
  Report Type: Spontaneous
  Country: IE (occurrence: IE)
  Receive Date: 20180321
  Receipt Date: 20180321
  Transmission Date: 20180509
  Serious: Yes (Hospitalization, Other)
  Sender: FDA-Public Use
  Company Number: IE-IPCA LABORATORIES LIMITED-IPC-2018-IE-000520

PATIENT
  Age: 54 Year
  Sex: Male

DRUGS (1)
  1. WARFARIN [Suspect]
     Active Substance: WARFARIN
     Indication: EMBOLISM
     Dosage: UNK
     Route: 065

REACTIONS (2)
  - Calciphylaxis [Recovered/Resolved]
  - Pancreatitis [Recovered/Resolved]
